FAERS Safety Report 13255538 (Version 2)
Quarter: 2017Q2

REPORT INFORMATION
  Report Type: Report from Study
  Country: CA (occurrence: CA)
  Receive Date: 20170221
  Receipt Date: 20170413
  Transmission Date: 20170830
  Serious: Yes (Other)
  Sender: FDA-Public Use
  Company Number: PHHY2014CA034432

PATIENT
  Sex: Female

DRUGS (7)
  1. XOLAIR [Suspect]
     Active Substance: OMALIZUMAB
     Dosage: 300 MG, ONCE IN EVERY 4 WEEKS
     Route: 058
  2. XOLAIR [Suspect]
     Active Substance: OMALIZUMAB
     Indication: CHRONIC SPONTANEOUS URTICARIA
     Dosage: 150 MG, ONCE IN EVERY 4 WEEKS
     Route: 058
     Dates: start: 20131126
  3. NEORAL [Suspect]
     Active Substance: CYCLOSPORINE
     Dosage: 200 MG, UNK
     Route: 065
     Dates: start: 20140225
  4. NEORAL [Suspect]
     Active Substance: CYCLOSPORINE
     Indication: PRODUCT USED FOR UNKNOWN INDICATION
     Dosage: 50 MG, UNK
     Route: 065
     Dates: start: 2013
  5. NEORAL [Suspect]
     Active Substance: CYCLOSPORINE
     Dosage: 50 MG, UNK
     Route: 065
     Dates: end: 2014
  6. SINGULAIR [Concomitant]
     Active Substance: MONTELUKAST SODIUM
     Indication: PRODUCT USED FOR UNKNOWN INDICATION
     Dosage: 10 MG, QD (AT BED TIME)
     Route: 065
  7. REACTINE [Concomitant]
     Active Substance: CETIRIZINE HYDROCHLORIDE
     Indication: PRODUCT USED FOR UNKNOWN INDICATION
     Dosage: 20 MG, BID
     Route: 065

REACTIONS (16)
  - Feeling hot [Unknown]
  - Abdominal pain [Unknown]
  - Pruritus [Unknown]
  - Pain [Unknown]
  - Diarrhoea [Unknown]
  - Product preparation error [Unknown]
  - Skin plaque [Unknown]
  - Viral upper respiratory tract infection [Unknown]
  - Thrombosis [Unknown]
  - Hypersensitivity [Unknown]
  - Food allergy [Unknown]
  - Erythema [Unknown]
  - Injection site bruising [Unknown]
  - Therapeutic response decreased [Unknown]
  - Cold sweat [Unknown]
  - Paraesthesia [Unknown]
